FAERS Safety Report 7500066-6 (Version None)
Quarter: 2011Q2

REPORT INFORMATION
  Report Type: 
  Country: None (occurrence: None)
  Receive Date: 20110524
  Receipt Date: 20110323
  Transmission Date: 20111010
  Serious: No
  Sender: FDA-Public Use
  Company Number: US-NOVEN-11US002058

PATIENT
  Sex: Male

DRUGS (2)
  1. DAYTRANA [Suspect]
     Indication: PRODUCT USED FOR UNKNOWN INDICATION
     Dosage: 10 MG, QD
     Route: 062
     Dates: start: 20110314, end: 20110321
  2. DAYTRANA [Suspect]
     Dosage: 10 MG, QD
     Route: 062
     Dates: start: 20110201, end: 20110314

REACTIONS (6)
  - PRODUCT QUALITY ISSUE [None]
  - OFF LABEL USE [None]
  - DRUG ADMINISTERED AT INAPPROPRIATE SITE [None]
  - APPLICATION SITE ERYTHEMA [None]
  - DRUG PRESCRIBING ERROR [None]
  - APPLICATION SITE EROSION [None]
